FAERS Safety Report 10379371 (Version 1)
Quarter: 2014Q3

REPORT INFORMATION
  Report Type: Spontaneous
  Country: US (occurrence: None)
  Receive Date: 20140811
  Receipt Date: 20140811
  Transmission Date: 20150326
  Serious: Yes (Other)
  Sender: FDA-Public Use
  Company Number: None

PATIENT
  Age: 47 Year
  Sex: Female
  Weight: 74.39 kg

DRUGS (1)
  1. KENALOG [Suspect]
     Active Substance: TRIAMCINOLONE ACETONIDE
     Indication: MULTIPLE ALLERGIES

REACTIONS (5)
  - Limb deformity [None]
  - Muscle atrophy [None]
  - Skin discolouration [None]
  - Drug administered at inappropriate site [None]
  - Injection site reaction [None]

NARRATIVE: CASE EVENT DATE: 20140708
